FAERS Safety Report 16955396 (Version 1)
Quarter: 2019Q4

REPORT INFORMATION
  Report Type: Spontaneous
  Country: JP (occurrence: JP)
  Receive Date: 20191024
  Receipt Date: 20191024
  Transmission Date: 20200122
  Serious: Yes (Other)
  Sender: FDA-Public Use
  Company Number: JP-GLAXOSMITHKLINE-JP2019JPN191844

PATIENT
  Age: 71 Year
  Sex: Female

DRUGS (2)
  1. ZANTAC [Suspect]
     Active Substance: RANITIDINE HYDROCHLORIDE
     Indication: GASTRITIS
     Dosage: 75 MG, UNK
     Route: 048
     Dates: start: 2015, end: 2019
  2. ZANTAC [Suspect]
     Active Substance: RANITIDINE HYDROCHLORIDE
     Indication: GASTRIC ULCER
     Dosage: 150 MG, BID
     Route: 048
     Dates: start: 1988, end: 2019

REACTIONS (7)
  - Nausea [Unknown]
  - Diarrhoea [Unknown]
  - Breast cancer female [Unknown]
  - Decreased appetite [Unknown]
  - Oedema peripheral [Unknown]
  - Abdominal discomfort [Unknown]
  - Abdominal pain [Unknown]

NARRATIVE: CASE EVENT DATE: 1992
